FAERS Safety Report 5621974-7 (Version None)
Quarter: 2008Q1

REPORT INFORMATION
  Report Type: 
  Country: None (occurrence: None)
  Receive Date: 20080211
  Receipt Date: 20080206
  Transmission Date: 20080703
  Serious: Yes (Death, Hospitalization)
  Sender: FDA-Public Use
  Company Number: B0506983A

PATIENT
  Age: 92 Year
  Sex: Female

DRUGS (2)
  1. ARIXTRA [Suspect]
     Indication: PHLEBITIS
     Dosage: 7.5MG PER DAY
     Route: 058
  2. PREVISCAN [Suspect]
     Indication: PHLEBITIS
     Dosage: 1UNIT PER DAY
     Route: 048

REACTIONS (3)
  - BURNING SENSATION [None]
  - CEREBRAL HAEMORRHAGE [None]
  - HEMIPLEGIA [None]
